FAERS Safety Report 7522512-4 (Version None)
Quarter: 2011Q2

REPORT INFORMATION
  Report Type: 
  Country: None (occurrence: None)
  Receive Date: 20110603
  Receipt Date: 20110527
  Transmission Date: 20111010
  Serious: Yes (Other)
  Sender: FDA-Public Use
  Company Number: CA-PFIZER INC-2011115394

PATIENT
  Age: 29 Year
  Sex: Female
  Weight: 60 kg

DRUGS (10)
  1. GRAVOL TAB [Suspect]
     Dosage: 25 MG IN 50 ML OF NORMAL SALINE
  2. SOLU-CORTEF [Suspect]
     Indication: PREMEDICATION
     Dosage: 200MG OVER 10-15 MINUTES
     Route: 042
     Dates: start: 20110402
  3. SOLU-CORTEF [Suspect]
     Dosage: UNK
     Route: 042
     Dates: start: 20110507
  4. REMICADE [Suspect]
     Dosage: UNK
     Dates: start: 20110507
  5. REMICADE [Suspect]
     Dosage: UNK
     Dates: start: 20110218
  6. BENADRYL [Suspect]
     Dosage: 25 MG, UNK
  7. BENADRYL [Suspect]
     Indication: PREMEDICATION
     Dosage: 50MG MIXED IN 50ML OF NORMAL SALINE
     Route: 042
     Dates: start: 20110402
  8. REMICADE [Suspect]
     Indication: CROHN'S DISEASE
     Dosage: 600 MG, ONCE 6 WEEKS
     Route: 042
     Dates: start: 20101112
  9. REMICADE [Suspect]
     Dosage: UNK
     Dates: start: 20110402
  10. TYLENOL-500 [Suspect]
     Indication: PREMEDICATION
     Dosage: 650 MG, UNK
     Route: 048

REACTIONS (7)
  - VOMITING [None]
  - DYSPHAGIA [None]
  - DYSPNOEA [None]
  - MALAISE [None]
  - NAUSEA [None]
  - INFUSION RELATED REACTION [None]
  - FLUSHING [None]
